FAERS Safety Report 7246456-0 (Version None)
Quarter: 2011Q1

REPORT INFORMATION
  Report Type: 
  Country: None (occurrence: None)
  Receive Date: 20110126
  Receipt Date: 20101108
  Transmission Date: 20110831
  Serious: No
  Sender: FDA-Public Use
  Company Number: US-MYLANLABS-2010S1019419

PATIENT
  Age: 59 Year
  Sex: Male

DRUGS (1)
  1. TAMSULOSIN HCL [Suspect]
     Indication: PROSTATOMEGALY

REACTIONS (3)
  - MICTURITION URGENCY [None]
  - DRUG INEFFECTIVE [None]
  - POLLAKIURIA [None]
